FAERS Safety Report 15060607 (Version 1)
Quarter: 2018Q2

REPORT INFORMATION
  Report Type: Spontaneous
  Country: CA (occurrence: CA)
  Receive Date: 20180625
  Receipt Date: 20180625
  Transmission Date: 20180711
  Serious: Yes (Hospitalization, Other)
  Sender: FDA-Public Use
  Company Number: CA-TEVA-2018-CA-912626

PATIENT
  Age: 31 Year
  Sex: Female
  Weight: 66.28 kg

DRUGS (3)
  1. RHOGAM [Concomitant]
     Active Substance: HUMAN RHO(D) IMMUNE GLOBULIN
  2. LENOLTEC W/CODEINE [Concomitant]
  3. MISOPROSTOL. [Suspect]
     Active Substance: MISOPROSTOL
     Indication: ABORTION INDUCED
     Route: 067

REACTIONS (4)
  - Abortion induced incomplete [Recovered/Resolved]
  - Abdominal pain lower [Recovered/Resolved]
  - Drug ineffective [Recovered/Resolved]
  - Hypomenorrhoea [Recovered/Resolved]
